FAERS Safety Report 13802034 (Version 1)
Quarter: 2017Q3

REPORT INFORMATION
  Report Type: Spontaneous
  Country: US (occurrence: US)
  Receive Date: 20170727
  Receipt Date: 20170727
  Transmission Date: 20171127
  Serious: Yes (Other)
  Sender: FDA-Public Use
  Company Number: None

PATIENT
  Age: 70 Year
  Sex: Female
  Weight: 75.15 kg

DRUGS (10)
  1. CLINDAMYCIN HCL 300MG [Suspect]
     Active Substance: CLINDAMYCIN HYDROCHLORIDE
     Indication: CELLULITIS
     Dosage: ?          QUANTITY:1 CAPSULE(S);?
     Route: 048
     Dates: start: 20170718, end: 20170727
  2. RESQ: OROSINE [Concomitant]
  3. CALAMARINE [Concomitant]
  4. RESVERATROL [Concomitant]
     Active Substance: DIETARY SUPPLEMENT\RESVERATROL
  5. LDL RED YEAST [Concomitant]
  6. SCHRIFF KRILL OIL [Concomitant]
  7. NATURES WAY VISION HERBAL FACTORS [Concomitant]
  8. CELL POWER BOOSTING ESSENCE [Concomitant]
     Active Substance: ALLANTOIN\PYRIDOXINE HYDROCHLORIDE
  9. EYE FACTORS [Concomitant]
  10. GLYCOMARINE [Concomitant]

REACTIONS (3)
  - Insomnia [None]
  - Memory impairment [None]
  - Confusional state [None]

NARRATIVE: CASE EVENT DATE: 20170720
